FAERS Safety Report 9537579 (Version 1)
Quarter: 2013Q3

REPORT INFORMATION
  Report Type: Spontaneous
  Country: US (occurrence: US)
  Receive Date: 20130919
  Receipt Date: 20130919
  Transmission Date: 20140515
  Serious: No
  Sender: FDA-Public Use
  Company Number: US-009507513-1309USA008719

PATIENT
  Sex: Female

DRUGS (1)
  1. DR. SCHOLLS CALLUS REMOVERS [Suspect]
     Indication: PAIN
     Dosage: UNK, UNKNOWN
     Route: 061
     Dates: start: 20130825

REACTIONS (1)
  - Drug ineffective [Unknown]
